FAERS Safety Report 23350491 (Version 2)
Quarter: 2024Q1

REPORT INFORMATION
  Report Type: Spontaneous
  Country: TR (occurrence: TR)
  Receive Date: 20231229
  Receipt Date: 20240111
  Transmission Date: 20240410
  Serious: Yes (Other)
  Sender: FDA-Public Use
  Company Number: TR-GLAXOSMITHKLINE-TR2023TRK181078

PATIENT

DRUGS (2)
  1. SERETIDE [Suspect]
     Active Substance: FLUTICASONE PROPIONATE\SALMETEROL XINAFOATE
     Indication: Asthma
     Dosage: UNK, BID
     Route: 055
     Dates: start: 20230601, end: 20231215
  2. ACETYLCYSTEINE\ASCORBIC ACID [Suspect]
     Active Substance: ACETYLCYSTEINE\ASCORBIC ACID
     Indication: Asthma
     Dosage: UNK

REACTIONS (2)
  - Tinnitus [Unknown]
  - Product use issue [Unknown]
